FAERS Safety Report 5270285-0 (Version None)
Quarter: 2007Q1

REPORT INFORMATION
  Report Type: 
  Country: None (occurrence: None)
  Receive Date: 20070320
  Receipt Date: 20070313
  Transmission Date: 20070707
  Serious: Yes (Hospitalization)
  Sender: FDA-Public Use
  Company Number: GB-SANOFI-SYNTHELABO-F01200700353

PATIENT
  Age: 57 Year
  Sex: Female
  Weight: 55 kg

DRUGS (2)
  1. OXALIPLATIN [Suspect]
     Indication: COLORECTAL CANCER METASTATIC
     Dosage: 144 MG
     Route: 041
     Dates: start: 20070227, end: 20070227
  2. FLUOROURACIL [Suspect]
     Dosage: 600 MG/M2 BOLUS FOLLOWED BY A 46 HOUR INFUSION OF 4000 MG/M2
     Route: 041
     Dates: start: 20070227, end: 20070228

REACTIONS (4)
  - CEREBRAL INFARCTION [None]
  - EYE PAIN [None]
  - HEADACHE [None]
  - VISION BLURRED [None]
